FAERS Safety Report 13567989 (Version 2)
Quarter: 2017Q2

REPORT INFORMATION
  Report Type: Spontaneous
  Country: EE (occurrence: EE)
  Receive Date: 20170522
  Receipt Date: 20170613
  Transmission Date: 20170830
  Serious: Yes (Other)
  Sender: FDA-Public Use
  Company Number: EE-GLAXOSMITHKLINE-EE2017GSK072118

PATIENT
  Age: 34 Year
  Sex: Female

DRUGS (6)
  1. LAMICTAL [Suspect]
     Active Substance: LAMOTRIGINE
     Indication: BIPOLAR DISORDER
     Dosage: UNK, 25+50 MG
     Route: 048
  2. FOLIC ACID. [Concomitant]
     Active Substance: FOLIC ACID
     Indication: PRODUCT USED FOR UNKNOWN INDICATION
     Dosage: UNK
  3. LAMICTAL [Suspect]
     Active Substance: LAMOTRIGINE
     Indication: AURA
     Dosage: 50 MG, BID
     Route: 048
  4. LAMICTAL [Suspect]
     Active Substance: LAMOTRIGINE
     Indication: EPILEPSY
     Dosage: 25 MG, BID
     Route: 048
  5. LAMICTAL [Suspect]
     Active Substance: LAMOTRIGINE
     Dosage: 25 MG, UNK
     Route: 048
  6. VITAMIN D [Concomitant]
     Active Substance: CHOLECALCIFEROL
     Indication: PRODUCT USED FOR UNKNOWN INDICATION
     Dosage: UNK

REACTIONS (11)
  - Dry skin [Unknown]
  - Weight increased [Unknown]
  - Pigmentation disorder [Unknown]
  - Eczema [Unknown]
  - Skin hypopigmentation [Unknown]
  - Skin exfoliation [Unknown]
  - Menstrual disorder [Unknown]
  - Hyperkeratosis [Unknown]
  - Pruritus generalised [Not Recovered/Not Resolved]
  - Eye haemorrhage [Unknown]
  - Pruritus [Unknown]
